FAERS Safety Report 7556355-2 (Version None)
Quarter: 2011Q2

REPORT INFORMATION
  Report Type: 
  Country: None (occurrence: None)
  Receive Date: 20110620
  Receipt Date: 20110613
  Transmission Date: 20111010
  Serious: Yes (Other)
  Sender: FDA-Public Use
  Company Number: US-JNJFOC-20110408832

PATIENT
  Sex: Female

DRUGS (1)
  1. FENTANYL-100 [Suspect]
     Indication: PRODUCT USED FOR UNKNOWN INDICATION
     Dosage: NDC#0781-7241-55
     Route: 062
     Dates: start: 20090101

REACTIONS (2)
  - PRODUCT PACKAGING ISSUE [None]
  - BEDRIDDEN [None]
